FAERS Safety Report 6981793-6 (Version None)
Quarter: 2010Q3

REPORT INFORMATION
  Report Type: 
  Country: None (occurrence: None)
  Receive Date: 20100914
  Receipt Date: 20091201
  Transmission Date: 20110219
  Serious: Yes (Other)
  Sender: FDA-Public Use
  Company Number: US-PFIZER INC-2009256339

PATIENT
  Sex: Female
  Weight: 106.12 kg

DRUGS (6)
  1. LYRICA [Suspect]
     Indication: PERIPHERAL NERVE INJURY
     Dates: start: 20090721, end: 20090728
  2. OXYCODONE [Concomitant]
     Dosage: UNK
  3. BUTALBITAL [Concomitant]
     Dosage: UNK
  4. SIMVASTATIN [Concomitant]
     Dosage: UNK
  5. ZYRTEC [Concomitant]
     Dosage: UNK
  6. AMITRIPTYLINE [Concomitant]
     Dosage: UNK

REACTIONS (4)
  - ABDOMINAL DISTENSION [None]
  - ARTHRALGIA [None]
  - SWELLING [None]
  - WEIGHT INCREASED [None]
